FAERS Safety Report 8822259 (Version 2)
Quarter: 2012Q4

REPORT INFORMATION
  Report Type: 
  Country: ES (occurrence: ES)
  Receive Date: 20121003
  Receipt Date: 20121010
  Transmission Date: 20130627
  Serious: Yes (Hospitalization)
  Sender: FDA-Public Use
  Company Number: ES-B.I. PHARMACEUTICALS,INC./RIDGEFIELD-2012-ES-00365ES

PATIENT
  Age: 75 Year
  Sex: Male

DRUGS (15)
  1. PRADAXA [Suspect]
     Indication: PROPHYLAXIS
     Dosage: 220 mg
     Route: 048
     Dates: start: 20120716, end: 20120802
  2. TRANGOREX [Suspect]
     Indication: ATRIAL FIBRILLATION
     Dosage: 200 mg
     Route: 048
     Dates: start: 20120716, end: 20120802
  3. ENALAPRIL [Concomitant]
     Indication: HYPERTENSION
     Dosage: 10 mg
     Route: 048
  4. LEVOFLOXACINO [Concomitant]
     Indication: RESPIRATORY TRACT INFECTION
     Dosage: 500 mg
     Route: 048
     Dates: start: 201207, end: 20120727
  5. OMEPRAZOL [Concomitant]
     Indication: PROPHYLAXIS
     Dosage: 20 mg
     Route: 048
  6. ACFOL [Concomitant]
     Indication: ANAEMIA
     Dosage: 5 mg
     Route: 048
  7. ADIRO [Concomitant]
     Indication: PROPHYLAXIS
     Dosage: 100 mg
     Route: 048
     Dates: start: 2007
  8. ALIPZA [Concomitant]
     Indication: HYPERCHOLESTEROLAEMIA
     Dosage: 1 mg
     Route: 048
     Dates: start: 20120716
  9. NITROPLAST [Concomitant]
     Indication: ANGINA PECTORIS
     Dosage: 15 mg
     Route: 062
  10. NORVAS [Concomitant]
     Indication: HYPERTENSION
     Dosage: 10 mg
     Route: 048
  11. ORBENIN [Concomitant]
     Indication: CELLULITIS
     Dosage: 4000 mg
     Route: 048
     Dates: start: 201207, end: 201207
  12. SEGURIL [Concomitant]
     Indication: HYPERTENSION
     Dosage: 120 mg
     Route: 048
  13. TARDYFERON [Concomitant]
     Indication: ANAEMIA
     Dosage: 80 mg
     Route: 048
  14. ZYLORIC [Concomitant]
     Indication: HYPERURICAEMIA
     Dosage: 300 mg
     Route: 048
  15. SPIRIVA [Concomitant]
     Route: 055

REACTIONS (4)
  - Lower gastrointestinal haemorrhage [Recovered/Resolved]
  - Iron deficiency anaemia [Recovered/Resolved]
  - Acute coronary syndrome [Recovered/Resolved]
  - Drug interaction [Recovered/Resolved]
